FAERS Safety Report 6773646-3 (Version None)
Quarter: 2010Q2

REPORT INFORMATION
  Report Type: 
  Country: None (occurrence: None)
  Receive Date: 20100614
  Receipt Date: 20100528
  Transmission Date: 20101027
  Serious: Yes (Other)
  Sender: FDA-Public Use
  Company Number: JP-1182066

PATIENT
  Age: 64 Year
  Sex: Male

DRUGS (1)
  1. FLUORESCITE [Suspect]
     Indication: ANGIOGRAM
     Dosage: 2 ML/5 SECONDS INTRAOCULAR
     Route: 031
     Dates: start: 20100514, end: 20100514

REACTIONS (2)
  - RASH [None]
  - VASCULITIS [None]
